FAERS Safety Report 9298065 (Version 1)
Quarter: 2013Q2

REPORT INFORMATION
  Report Type: Spontaneous
  Country: IT (occurrence: IT)
  Receive Date: 20130520
  Receipt Date: 20130520
  Transmission Date: 20140414
  Serious: Yes (Hospitalization)
  Sender: FDA-Public Use
  Company Number: IT-BRISTOL-MYERS SQUIBB COMPANY-18880120

PATIENT
  Age: 91 Year
  Sex: Male

DRUGS (9)
  1. COUMADIN TABS 5 MG [Suspect]
     Indication: ATRIAL FIBRILLATION
     Route: 048
     Dates: start: 20130101, end: 20130412
  2. RAMIPRIL [Concomitant]
     Route: 048
  3. PEPTAZOL [Concomitant]
     Dosage: TAB
     Route: 048
  4. LUVION [Concomitant]
     Dosage: TAB
     Route: 048
  5. RESPICUR [Concomitant]
     Dosage: ^RIGID CAPSULES
     Route: 048
  6. LASIX [Concomitant]
     Dosage: ^TAB 25MG^ 3 DOSE
     Route: 048
  7. SPIRIVA [Concomitant]
     Route: 055
  8. LANOXIN [Concomitant]
     Dosage: 1DF=^0,125MG TAB^
     Route: 048
  9. CONGESCOR [Concomitant]
     Dosage: 1DF=^TAB 1,25MG
     Route: 048

REACTIONS (2)
  - Coma [Unknown]
  - Cerebral ischaemia [Unknown]
